FAERS Safety Report 12175298 (Version 1)
Quarter: 2016Q1

REPORT INFORMATION
  Report Type: Spontaneous
  Country: GB (occurrence: GB)
  Receive Date: 20160314
  Receipt Date: 20160314
  Transmission Date: 20160526
  Serious: Yes (Other)
  Sender: FDA-Public Use
  Company Number: GB-UCBSA-2016008674

PATIENT
  Sex: Female

DRUGS (1)
  1. ISOSORBIDE MONONITRATE EXTENDED RELEASE [Suspect]
     Active Substance: ISOSORBIDE MONONITRATE
     Indication: PRODUCT USED FOR UNKNOWN INDICATION
     Dosage: 50 MG, ONCE DAILY (QD) 2 X 25 MG TABLETS IN THE MORNING
     Route: 048
     Dates: start: 201508

REACTIONS (1)
  - Visual acuity reduced [Unknown]
